FAERS Safety Report 14668293 (Version 1)
Quarter: 2018Q1

REPORT INFORMATION
  Report Type: Spontaneous
  Country: CA (occurrence: CA)
  Receive Date: 20180322
  Receipt Date: 20180322
  Transmission Date: 20180509
  Serious: Yes (Hospitalization, Disabling, Other)
  Sender: FDA-Public Use
  Company Number: CA-BAYER-2018-051592

PATIENT
  Age: 44 Year
  Sex: Female
  Weight: 83.45 kg

DRUGS (1)
  1. MIRENA [Suspect]
     Active Substance: LEVONORGESTREL
     Indication: MENSTRUAL DISORDER
     Dosage: 20 MCG/24HR, CONT
     Route: 015

REACTIONS (16)
  - Alopecia [Unknown]
  - Palpitations [Unknown]
  - Fatigue [Unknown]
  - Hypertrichosis [Unknown]
  - Insomnia [Unknown]
  - Headache [Unknown]
  - Oophorectomy [Unknown]
  - Anxiety [Unknown]
  - Impaired driving ability [Unknown]
  - Labyrinthitis [Unknown]
  - Weight increased [Unknown]
  - Apathy [Unknown]
  - Dizziness [Unknown]
  - Loss of libido [Unknown]
  - Ovarian cyst [Unknown]
  - Pain in jaw [Unknown]
